FAERS Safety Report 11180659 (Version 1)
Quarter: 2015Q2

REPORT INFORMATION
  Report Type: Spontaneous
  Country: US (occurrence: US)
  Receive Date: 20150611
  Receipt Date: 20150611
  Transmission Date: 20150821
  Serious: Yes (Hospitalization)
  Sender: FDA-Public Use
  Company Number: US-BAYER-2015-315994

PATIENT
  Age: 50 Year
  Sex: Male

DRUGS (2)
  1. GLYBURIDE W/METFORMIN [Interacting]
     Active Substance: GLYBURIDE\METFORMIN
  2. CIPROFLOXACIN. [Suspect]
     Active Substance: CIPROFLOXACIN
     Indication: SKIN ULCER
     Dosage: UNK

REACTIONS (3)
  - Drug interaction [None]
  - Hypoglycaemia [None]
  - Off label use [None]
